FAERS Safety Report 25944868 (Version 1)
Quarter: 2025Q4

REPORT INFORMATION
  Report Type: Spontaneous
  Country: US (occurrence: US)
  Receive Date: 20251021
  Receipt Date: 20251021
  Transmission Date: 20260118
  Serious: No
  Sender: Phathom Pharmaceuticals
  Company Number: US-PHATHOM PHARMACEUTICALS INC.-2025PHT02475

PATIENT
  Age: 46 Year
  Sex: Female

DRUGS (13)
  1. VOQUEZNA [Suspect]
     Active Substance: VONOPRAZAN FUMARATE
     Indication: Gastrooesophageal reflux disease
     Dosage: 20 MG, 1X/DAY
     Route: 048
     Dates: start: 20250823, end: 20250830
  2. LASIX [Concomitant]
     Active Substance: FUROSEMIDE
  3. AMOXICILLIN [Concomitant]
     Active Substance: AMOXICILLIN
  4. LAMICTAL [Concomitant]
     Active Substance: LAMOTRIGINE
  5. LIDOCAINE [Concomitant]
     Active Substance: LIDOCAINE
  6. ADDERALL [Concomitant]
     Active Substance: AMPHETAMINE ASPARTATE\AMPHETAMINE SULFATE\DEXTROAMPHETAMINE SACCHARATE\DEXTROAMPHETAMINE SULFATE
  7. NORCO [Concomitant]
     Active Substance: ACETAMINOPHEN\HYDROCODONE BITARTRATE
  8. PHENERGAN [Concomitant]
     Active Substance: PROMETHAZINE HYDROCHLORIDE
  9. AMBIEN [Concomitant]
     Active Substance: ZOLPIDEM TARTRATE
  10. UBRELVY [Concomitant]
     Active Substance: UBROGEPANT
  11. VALIUM [Concomitant]
     Active Substance: DIAZEPAM
  12. QULIPTA [Concomitant]
     Active Substance: ATOGEPANT
  13. KEPPRA [Concomitant]
     Active Substance: LEVETIRACETAM

REACTIONS (2)
  - Polydipsia [Unknown]
  - Dry mouth [Unknown]

NARRATIVE: CASE EVENT DATE: 20250823
